FAERS Safety Report 19719828 (Version 1)
Quarter: 2021Q3

REPORT INFORMATION
  Report Type: Report from Study
  Country: JP (occurrence: JP)
  Receive Date: 20210818
  Receipt Date: 20210818
  Transmission Date: 20211014
  Serious: Yes (Hospitalization)
  Sender: FDA-Public Use
  Company Number: JP-TEVA-2021-JP-1942219

PATIENT
  Age: 54 Year
  Sex: Female

DRUGS (2)
  1. PREDNISOLONE. [Suspect]
     Active Substance: PREDNISOLONE
     Indication: AUTOIMMUNE HEPATITIS
  2. PREDNISOLONE. [Suspect]
     Active Substance: PREDNISOLONE
     Indication: ACUTE HEPATIC FAILURE
     Dosage: SYSTEMIC CORTICOSTEROID THERAPY WITH PREDNISOLONE WAS CONTINUOUSLY ADMINISTERED
     Route: 065

REACTIONS (4)
  - Pneumocystis jirovecii infection [Recovered/Resolved]
  - Opportunistic infection [Recovered/Resolved]
  - Cytomegalovirus infection [Recovered/Resolved]
  - Aspergillus infection [Recovered/Resolved]
